FAERS Safety Report 6214818-6 (Version None)
Quarter: 2009Q2

REPORT INFORMATION
  Report Type: 
  Country: None (occurrence: None)
  Receive Date: 20090604
  Receipt Date: 20090522
  Transmission Date: 20091009
  Serious: Yes (Hospitalization, Other)
  Sender: FDA-Public Use
  Company Number: US-PFIZER INC-2009215148

PATIENT
  Age: 55 Year
  Sex: Male

DRUGS (4)
  1. ZOLOFT [Suspect]
     Indication: DEPRESSION
  2. TRAMADOL HCL [Suspect]
     Indication: DEPRESSION
  3. TRAMADOL HCL [Suspect]
     Indication: INSOMNIA
  4. TRAZODONE HCL [Suspect]

REACTIONS (7)
  - AMNESIA [None]
  - ARTHRALGIA [None]
  - BLOOD CREATINE PHOSPHOKINASE INCREASED [None]
  - DELIRIUM [None]
  - DRUG ABUSE [None]
  - INSOMNIA [None]
  - SEROTONIN SYNDROME [None]
